FAERS Safety Report 8615363-0 (Version None)
Quarter: 2012Q3

REPORT INFORMATION
  Report Type: 
  Country: None (occurrence: None)
  Receive Date: 20120815
  Receipt Date: 20120815
  Transmission Date: 20120928
  Serious: Yes (Hospitalization)
  Sender: FDA-Public Use
  Company Number: None

PATIENT
  Age: 82 Year
  Sex: Female
  Weight: 58.9676 kg

DRUGS (6)
  1. ATENOLOL [Concomitant]
  2. FAMOTIDINE [Concomitant]
  3. SIMVASTATIN [Concomitant]
  4. LOSARTAN POTASSIUM [Concomitant]
  5. GLIPIZIDE [Suspect]
     Indication: DIABETES MELLITUS
     Dosage: 2.5MG ONCE DAILY PO
     Route: 048
  6. ASPIRIN [Concomitant]

REACTIONS (3)
  - DIZZINESS [None]
  - FALL [None]
  - ASTHENIA [None]
